FAERS Safety Report 5913039-1 (Version None)
Quarter: 2008Q4

REPORT INFORMATION
  Report Type: 
  Country: None (occurrence: None)
  Receive Date: 20081008
  Receipt Date: 20080926
  Transmission Date: 20090506
  Serious: Yes (Hospitalization)
  Sender: FDA-Public Use
  Company Number: DE-PFIZER INC-2008083021

PATIENT
  Age: 81 Year
  Sex: Female

DRUGS (6)
  1. ZYVOXID TABLET [Suspect]
     Indication: INTERVERTEBRAL DISCITIS
     Route: 048
     Dates: start: 20080923, end: 20080924
  2. ZYVOXID TABLET [Suspect]
     Indication: STAPHYLOCOCCAL INFECTION
  3. COTRIM [Suspect]
     Indication: INTERVERTEBRAL DISCITIS
     Route: 048
     Dates: start: 20080924
  4. COTRIM [Suspect]
     Indication: STAPHYLOCOCCAL INFECTION
  5. RIFAMPICIN [Concomitant]
     Route: 042
     Dates: start: 20080801, end: 20080922
  6. VANCOMYCIN [Concomitant]
     Route: 042
     Dates: start: 20080801, end: 20080922

REACTIONS (5)
  - BLOOD BILIRUBIN INCREASED [None]
  - C-REACTIVE PROTEIN INCREASED [None]
  - CHILLS [None]
  - GAMMA-GLUTAMYLTRANSFERASE INCREASED [None]
  - PYREXIA [None]
